FAERS Safety Report 19300632 (Version 1)
Quarter: 2021Q2

REPORT INFORMATION
  Report Type: Spontaneous
  Country: US (occurrence: US)
  Receive Date: 20210525
  Receipt Date: 20210525
  Transmission Date: 20210717
  Serious: No
  Sender: FDA-Public Use
  Company Number: None

PATIENT
  Age: 61 Year
  Sex: Male
  Weight: 101.2 kg

DRUGS (2)
  1. ACETYLCYSTEINE 20% (200MG/ML) IN 4ML [Suspect]
     Active Substance: ACETYLCYSTEINE
     Indication: ACUTE RESPIRATORY FAILURE
     Route: 055
     Dates: start: 20210412
  2. ACETYLCYSTEINE 20% (200MG/ML) IN 4ML [Suspect]
     Active Substance: ACETYLCYSTEINE
     Indication: HYPOXIA
     Route: 055
     Dates: start: 20210412

REACTIONS (2)
  - Incorrect route of product administration [None]
  - Physical product label issue [None]

NARRATIVE: CASE EVENT DATE: 20210413
